FAERS Safety Report 5207061-0 (Version None)
Quarter: 2007Q1

REPORT INFORMATION
  Report Type: 
  Country: None (occurrence: None)
  Receive Date: 20070112
  Receipt Date: 20070109
  Transmission Date: 20070707
  Serious: Yes (Hospitalization)
  Sender: FDA-Public Use
  Company Number: FR-JNJFOC-20061201322

PATIENT
  Age: 82 Year
  Sex: Female

DRUGS (8)
  1. DURAGESIC-100 [Suspect]
     Route: 062
  2. DURAGESIC-100 [Suspect]
     Route: 062
  3. DURAGESIC-100 [Suspect]
     Indication: CANCER PAIN
     Route: 062
  4. ACTISKENAN [Interacting]
     Indication: CANCER PAIN
     Route: 048
  5. LANSOYL [Concomitant]
     Indication: CONSTIPATION
     Route: 065
  6. ROVAMYCINE [Concomitant]
     Indication: ERYSIPELAS
     Route: 065
  7. PREVISCAN [Concomitant]
     Indication: DRUG USE FOR UNKNOWN INDICATION
     Route: 065
  8. GEMCITABINE [Concomitant]
     Indication: NEOPLASM MALIGNANT
     Route: 065

REACTIONS (7)
  - CONFUSIONAL STATE [None]
  - CONSTIPATION [None]
  - DRUG INTERACTION [None]
  - HALLUCINATION [None]
  - MIOSIS [None]
  - OEDEMA PERIPHERAL [None]
  - PAIN [None]
